FAERS Safety Report 8601178-6 (Version None)
Quarter: 2012Q3

REPORT INFORMATION
  Report Type: 
  Country: None (occurrence: None)
  Receive Date: 20120817
  Receipt Date: 20120814
  Transmission Date: 20120928
  Serious: Yes (Death, Hospitalization, Other)
  Sender: FDA-Public Use
  Company Number: PHHY2012BR070770

PATIENT
  Sex: Female

DRUGS (1)
  1. DIOVAN HCT [Suspect]
     Indication: HYPERTENSION
     Dosage: 1 TABLET DAILY

REACTIONS (12)
  - MEDICAL DEVICE COMPLICATION [None]
  - AGITATION [None]
  - ILLOGICAL THINKING [None]
  - NERVOUSNESS [None]
  - APHAGIA [None]
  - DYSPNOEA [None]
  - DISORIENTATION [None]
  - DYSPHAGIA [None]
  - MULTI-ORGAN FAILURE [None]
  - SEPTIC SHOCK [None]
  - CEREBROVASCULAR ACCIDENT [None]
  - LACK OF SPONTANEOUS SPEECH [None]
